FAERS Safety Report 9306479 (Version 10)
Quarter: 2015Q1

REPORT INFORMATION
  Report Type: Spontaneous
  Country: US (occurrence: US)
  Receive Date: 20130523
  Receipt Date: 20150316
  Transmission Date: 20150721
  Serious: Yes (Disabling, Other)
  Sender: FDA-Public Use
  Company Number: US-009507513-1305USA012242

PATIENT
  Sex: Male
  Weight: 102.4 kg

DRUGS (5)
  1. PROSCAR [Suspect]
     Active Substance: FINASTERIDE
     Indication: ALOPECIA
     Dosage: 5 MG, UNK
     Route: 048
     Dates: start: 1996, end: 2011
  2. FINASTERIDE. [Suspect]
     Active Substance: FINASTERIDE
     Indication: ALOPECIA
     Dosage: 5 MG, UNK
     Route: 048
     Dates: start: 2006, end: 2011
  3. FINASTERIDE. [Suspect]
     Active Substance: FINASTERIDE
     Dosage: 5 MG, 1/4 TABLET DAILY
     Route: 048
  4. PROPECIA [Suspect]
     Active Substance: FINASTERIDE
     Indication: ALOPECIA
     Dosage: 1 MG, UNK
     Route: 048
  5. FINASTERIDE. [Suspect]
     Active Substance: FINASTERIDE
     Dosage: 5 MG, DAILY
     Route: 048

REACTIONS (52)
  - Atrial fibrillation [Unknown]
  - Cardiac disorder [Unknown]
  - Ocular hyperaemia [Unknown]
  - Type 2 diabetes mellitus [Unknown]
  - Costochondritis [Unknown]
  - Hypertension [Unknown]
  - Gastrooesophageal reflux disease [Unknown]
  - Supraventricular extrasystoles [Unknown]
  - Cardiac stress test abnormal [Unknown]
  - Upper-airway cough syndrome [Unknown]
  - Sensory disturbance [Not Recovered/Not Resolved]
  - Facial bones fracture [Unknown]
  - Depression [Unknown]
  - Panic attack [Unknown]
  - Meniscus operation [Unknown]
  - Sinus operation [Unknown]
  - Non-cardiac chest pain [Unknown]
  - Nephrolithiasis [Unknown]
  - Paraesthesia [Not Recovered/Not Resolved]
  - Alopecia [Unknown]
  - Hypoxia [Unknown]
  - Arthralgia [Unknown]
  - Visual impairment [Unknown]
  - Premature ejaculation [Unknown]
  - Paraesthesia [Not Recovered/Not Resolved]
  - Gynaecomastia [Not Recovered/Not Resolved]
  - Basal cell carcinoma [Unknown]
  - Dizziness [Unknown]
  - Abdominal pain lower [Unknown]
  - Blood testosterone decreased [Unknown]
  - Drug administration error [Unknown]
  - Hyperlipidaemia [Unknown]
  - Helicobacter infection [Unknown]
  - Sexual dysfunction [Not Recovered/Not Resolved]
  - Generalised tonic-clonic seizure [Recovering/Resolving]
  - Presyncope [Unknown]
  - Ventricular extrasystoles [Unknown]
  - Glycosuria [Unknown]
  - Visual acuity reduced [Not Recovered/Not Resolved]
  - Sinus bradycardia [Unknown]
  - Basal cell carcinoma [Unknown]
  - Basal cell carcinoma [Unknown]
  - Erectile dysfunction [Not Recovered/Not Resolved]
  - Anxiety [Unknown]
  - Musculoskeletal chest pain [Unknown]
  - Fibrosis [Unknown]
  - Caffeine consumption [Recovering/Resolving]
  - Oral disorder [Unknown]
  - Loss of libido [Not Recovered/Not Resolved]
  - Myalgia [Unknown]
  - Hypercholesterolaemia [Unknown]
  - Memory impairment [Unknown]

NARRATIVE: CASE EVENT DATE: 1996
